FAERS Safety Report 12505912 (Version 2)
Quarter: 2016Q3

REPORT INFORMATION
  Report Type: Spontaneous
  Country: US (occurrence: US)
  Receive Date: 20160628
  Receipt Date: 20160705
  Transmission Date: 20161109
  Serious: No
  Sender: FDA-Public Use
  Company Number: US-TAKEDA-2016TUS011024

PATIENT
  Age: 43 Year
  Sex: Female
  Weight: 75.28 kg

DRUGS (2)
  1. SYNTHROID [Concomitant]
     Active Substance: LEVOTHYROXINE SODIUM
     Indication: HYPOTHYROIDISM
     Dosage: 0.75 ?G, UNK
     Dates: start: 2006
  2. CONTRAVE [Suspect]
     Active Substance: BUPROPION HYDROCHLORIDE\NALTREXONE HYDROCHLORIDE
     Indication: OVERWEIGHT
     Dosage: 8/90 MG, QD
     Route: 048
     Dates: start: 20160618

REACTIONS (2)
  - Dry eye [Recovering/Resolving]
  - Mydriasis [Recovered/Resolved]

NARRATIVE: CASE EVENT DATE: 20160620
